FAERS Safety Report 9357982 (Version 1)
Quarter: 2013Q2

REPORT INFORMATION
  Report Type: Spontaneous
  Country: US (occurrence: US)
  Receive Date: 20130620
  Receipt Date: 20130620
  Transmission Date: 20140414
  Serious: No
  Sender: FDA-Public Use
  Company Number: US-PFIZER INC-2013174203

PATIENT
  Age: 54 Year
  Sex: Male
  Weight: 58.96 kg

DRUGS (8)
  1. DEPO-TESTOSTERONE [Suspect]
     Indication: PRIMARY HYPOGONADISM
     Dosage: 0.25 ML, WEEKLY
     Route: 030
     Dates: start: 201304
  2. DEPO-TESTOSTERONE [Suspect]
     Dosage: 0.25 ML, WEEKLY
     Route: 030
     Dates: start: 201304
  3. HYZAAR [Concomitant]
     Indication: HYPERTENSION
     Dosage: UNK, LOSARTAN POTASSIUM 100 MG/ HYDROCHLOROTHIAZIDE 12.5 MG DAILY
  4. OMEPRAZOLE [Concomitant]
     Dosage: 20 MG, 1X/DAY
  5. CELEXA [Concomitant]
     Dosage: 10 MG, 1X/DAY
  6. TRAMADOL [Concomitant]
     Dosage: 50 MG, 1X/DAY
  7. PERCOCET [Concomitant]
     Indication: PAIN
     Dosage: UNK, ACETAMINOPHEN 325 MG / OXYCODONE 5 MG, AS NEEDED
  8. FLOMAX [Concomitant]
     Dosage: 20 MG, 1X/DAY

REACTIONS (3)
  - Product quality issue [Unknown]
  - Incorrect dose administered [Unknown]
  - Blood testosterone decreased [Unknown]
